FAERS Safety Report 12492023 (Version 2)
Quarter: 2016Q3

REPORT INFORMATION
  Report Type: Spontaneous
  Country: GB (occurrence: GB)
  Receive Date: 20160623
  Receipt Date: 20160704
  Transmission Date: 20161109
  Serious: Yes (Other)
  Sender: FDA-Public Use
  Company Number: GB-JNJFOC-20160613683

PATIENT
  Sex: Male

DRUGS (2)
  1. REGAINE FOR MEN EXTRA STRENGTH 5% [Suspect]
     Active Substance: MINOXIDIL
     Route: 065
  2. REGAINE FOR MEN EXTRA STRENGTH 5% [Suspect]
     Active Substance: MINOXIDIL
     Indication: PRODUCT USED FOR UNKNOWN INDICATION
     Route: 065
     Dates: start: 201606, end: 201606

REACTIONS (4)
  - Eye swelling [Recovering/Resolving]
  - Swelling face [Recovering/Resolving]
  - Asphyxia [Recovering/Resolving]
  - Hypersensitivity [Recovering/Resolving]

NARRATIVE: CASE EVENT DATE: 201606
